FAERS Safety Report 8804857 (Version 1)
Quarter: 2012Q4

REPORT INFORMATION
  Report Type: Spontaneous
  Country: US (occurrence: None)
  Receive Date: 20120918
  Receipt Date: 20120918
  Transmission Date: 20130627
  Serious: No
  Sender: FDA-Public Use
  Company Number: None

PATIENT
  Age: 29 Year
  Sex: Female
  Weight: 57.61 kg

DRUGS (1)
  1. REGLAN [Suspect]
     Indication: GASTROPARESIS
     Route: 048
     Dates: start: 20120515, end: 20120621

REACTIONS (4)
  - Depression [None]
  - Suicidal ideation [None]
  - Feeling abnormal [None]
  - Anxiety [None]
